FAERS Safety Report 6759583-9 (Version None)
Quarter: 2010Q2

REPORT INFORMATION
  Report Type: 
  Country: None (occurrence: None)
  Receive Date: 20100608
  Receipt Date: 20100524
  Transmission Date: 20101027
  Serious: Yes (Disabling)
  Sender: FDA-Public Use
  Company Number: GB-MYLANLABS-2010S1009222

PATIENT
  Age: 29 Year
  Sex: Female

DRUGS (5)
  1. RISPERIDONE [Suspect]
     Indication: HALLUCINATION
     Route: 048
     Dates: start: 20100205, end: 20100330
  2. CETIRIZINE HCL [Concomitant]
     Indication: DRUG USE FOR UNKNOWN INDICATION
  3. CLONAZEPAM [Concomitant]
     Indication: DRUG USE FOR UNKNOWN INDICATION
  4. PIRITON [Concomitant]
     Indication: DRUG USE FOR UNKNOWN INDICATION
  5. QUETIAPINE [Concomitant]
     Indication: DRUG USE FOR UNKNOWN INDICATION

REACTIONS (2)
  - LYMPHOEDEMA [None]
  - RASH [None]
